FAERS Safety Report 12618587 (Version 6)
Quarter: 2017Q1

REPORT INFORMATION
  Report Type: Report from Study
  Country: None (occurrence: AT)
  Receive Date: 20160803
  Receipt Date: 20170216
  Transmission Date: 20170428
  Serious: Yes (Hospitalization, Other)
  Sender: FDA-Public Use
  Company Number: AT-ABBVIE-16K-009-1688020-00

PATIENT
  Age: 76 Year
  Sex: Male

DRUGS (1)
  1. DUODOPA [Suspect]
     Active Substance: CARBIDOPA\LEVODOPA
     Indication: PARKINSON^S DISEASE
     Dosage: 16H THERAPY, MD 8ML, CR DAILY: 2.7ML/H, ED: 1ML
     Route: 050
     Dates: start: 20130912

REACTIONS (10)
  - Gastritis haemorrhagic [Unknown]
  - Impaired healing [Unknown]
  - Gastric dilatation [Unknown]
  - Pneumonia [Recovering/Resolving]
  - Stoma site reaction [Recovering/Resolving]
  - Stoma site discharge [Recovering/Resolving]
  - Medical device site ulcer [Unknown]
  - Gastrooesophageal reflux disease [Unknown]
  - Gastrointestinal stoma complication [Unknown]
  - Stoma site hypergranulation [Unknown]

NARRATIVE: CASE EVENT DATE: 2016
